FAERS Safety Report 5385059-X (Version None)
Quarter: 2007Q3

REPORT INFORMATION
  Report Type: 
  Country: None (occurrence: None)
  Receive Date: 20070712
  Receipt Date: 20070705
  Transmission Date: 20080115
  Serious: Yes (Other)
  Sender: FDA-Public Use
  Company Number: PHBS2007JP11562

PATIENT
  Age: 58 Year
  Sex: Female

DRUGS (2)
  1. ZOMETA [Suspect]
     Indication: METASTASES TO BONE
     Dosage: 4 MG/MONTH
     Route: 042
     Dates: start: 20060816, end: 20070418
  2. DECADRON [Suspect]
     Dosage: 2 MG/DAY
     Route: 048
     Dates: start: 20060818

REACTIONS (4)
  - JOINT SWELLING [None]
  - OSTEOMYELITIS [None]
  - PAIN IN JAW [None]
  - POOR PERSONAL HYGIENE [None]
